FAERS Safety Report 17823205 (Version 2)
Quarter: 2020Q3

REPORT INFORMATION
  Report Type: Report from Study
  Country: US (occurrence: US)
  Receive Date: 20200526
  Receipt Date: 20200702
  Transmission Date: 20201102
  Serious: Yes (Other)
  Sender: FDA-Public Use
  Company Number: US-GLAXOSMITHKLINE-US2020AMR053732

PATIENT
  Age: 72 Year
  Sex: Female

DRUGS (4)
  1. NIRAPARIB [Suspect]
     Active Substance: NIRAPARIB
     Dosage: 100 MG, QD
     Dates: start: 20200303, end: 202006
  2. NIRAPARIB [Suspect]
     Active Substance: NIRAPARIB
     Dosage: 100 MG, QD
  3. NIRAPARIB [Suspect]
     Active Substance: NIRAPARIB
     Indication: MALIGNANT PERITONEAL NEOPLASM
     Dosage: 200 MG
     Dates: start: 201911
  4. NIRAPARIB [Suspect]
     Active Substance: NIRAPARIB
     Dosage: 100 MG, QD
     Dates: start: 20200303

REACTIONS (7)
  - Underdose [Unknown]
  - Blood count abnormal [Unknown]
  - Weight decreased [Unknown]
  - Fluid intake reduced [Unknown]
  - Constipation [Unknown]
  - Recurrent cancer [Not Recovered/Not Resolved]
  - Abdominal wall disorder [Unknown]
